FAERS Safety Report 4603997-X (Version None)
Quarter: 2005Q1

REPORT INFORMATION
  Report Type: 
  Country: None (occurrence: None)
  Receive Date: 20050308
  Receipt Date: 20050223
  Transmission Date: 20050727
  Serious: Yes (Hospitalization)
  Sender: FDA-Public Use
  Company Number: 2005035925

PATIENT
  Age: 82 Year
  Sex: Female
  Weight: 49.8957 kg

DRUGS (4)
  1. DETROL LA [Suspect]
     Indication: HYPERTONIC BLADDER
     Dosage: 1 IN 1 D, ORAL
     Route: 048
     Dates: start: 20020101
  2. PROPRANOLOL [Concomitant]
  3. CONJUGATED ESTROGENS [Concomitant]
  4. LAXATIVES (LAXATIVES) [Concomitant]

REACTIONS (5)
  - CATHETER RELATED INFECTION [None]
  - CHROMATURIA [None]
  - CYSTITIS [None]
  - DRY MOUTH [None]
  - ENURESIS [None]
